FAERS Safety Report 12825076 (Version 1)
Quarter: 2016Q4

REPORT INFORMATION
  Report Type: Report from Study
  Country: AU (occurrence: AU)
  Receive Date: 20161007
  Receipt Date: 20161007
  Transmission Date: 20170207
  Serious: Yes (Hospitalization)
  Sender: FDA-Public Use
  Company Number: AU-IPCA LABORATORIES LIMITED-IPC201609-000841

PATIENT

DRUGS (5)
  1. FELODIPINE. [Suspect]
     Active Substance: FELODIPINE
  2. GLICLAZIDE [Suspect]
     Active Substance: GLICLAZIDE
  3. RAMIPRIL. [Suspect]
     Active Substance: RAMIPRIL
  4. GABAPENTIN. [Suspect]
     Active Substance: GABAPENTIN
  5. METFORMIN HYDROCHLORIDE. [Suspect]
     Active Substance: METFORMIN HYDROCHLORIDE

REACTIONS (1)
  - Drug-induced liver injury [Unknown]
